FAERS Safety Report 9547105 (Version 1)
Quarter: 2013Q2

REPORT INFORMATION
  Report Type: Spontaneous
  Country: US (occurrence: None)
  Receive Date: 20130606
  Receipt Date: 20130606
  Transmission Date: 20140414
  Serious: No
  Sender: FDA-Public Use
  Company Number: 163-POMAL-13043542

PATIENT
  Age: 68 Year
  Sex: Male

DRUGS (7)
  1. POMALYST (POMALIDOMIDE) (4 MILLIGRAM, CAPSULES) [Suspect]
     Indication: PLASMA CELL MYELOMA
     Dosage: 4 MG, 21 IN 28 D, PO
     Route: 048
     Dates: start: 20130314
  2. ACYCLOVIR (ACICLOVIR) (UNKNOWN) [Concomitant]
  3. AMLODIPINE (AMLODIPINE) (UNKNOWN) [Concomitant]
  4. ASA (ACETYLSALICYLIC ACID (UNKNOWN) [Concomitant]
  5. BACTRIM (BACTRIM) (UNKNOWN) [Concomitant]
  6. METOPROLOL (METOPROLOL) (UNKNOWN) [Concomitant]
  7. TEMAZEP0AM (TEMAZEPAM) (UNKNOWN) [Concomitant]

REACTIONS (1)
  - Oedema peripheral [None]
